FAERS Safety Report 10481785 (Version 1)
Quarter: 2014Q3

REPORT INFORMATION
  Report Type: Spontaneous
  Country: GB (occurrence: GB)
  Receive Date: 20140929
  Receipt Date: 20140929
  Transmission Date: 20150326
  Serious: Yes (Other)
  Sender: FDA-Public Use
  Company Number: GB-PFIZER INC-2014264660

PATIENT
  Sex: Female

DRUGS (1)
  1. ANADIN LIQUIFAST [Suspect]
     Active Substance: IBUPROFEN
     Dosage: UNK

REACTIONS (5)
  - Expired product administered [Unknown]
  - Malaise [Unknown]
  - Vomiting [Unknown]
  - Renal disorder [Unknown]
  - Asthenia [Unknown]
